FAERS Safety Report 21358840 (Version 1)
Quarter: 2022Q3

REPORT INFORMATION
  Report Type: Spontaneous
  Country: US (occurrence: None)
  Receive Date: 20220920
  Receipt Date: 20220920
  Transmission Date: 20221026
  Serious: Yes (Hospitalization)
  Sender: FDA-Public Use
  Company Number: None

PATIENT
  Age: 73 Year
  Sex: Male
  Weight: 67.5 kg

DRUGS (3)
  1. OZEMPIC [Suspect]
     Active Substance: SEMAGLUTIDE
     Indication: Diabetes mellitus
     Dosage: OTHER QUANTITY : 0.25 0.25MG/WEEK;?OTHER FREQUENCY : EVERY WEEK;?
     Route: 058
     Dates: start: 20220919, end: 20220920
  2. CALCIUM [Concomitant]
     Active Substance: CALCIUM
  3. vitD [Concomitant]

REACTIONS (2)
  - Cholecystitis infective [None]
  - Cholecystitis [None]

NARRATIVE: CASE EVENT DATE: 20220920
